FAERS Safety Report 7595167-0 (Version None)
Quarter: 2011Q3

REPORT INFORMATION
  Report Type: 
  Country: None (occurrence: None)
  Receive Date: 20110707
  Receipt Date: 20110624
  Transmission Date: 20111222
  Serious: Yes (Death, Hospitalization, Other)
  Sender: FDA-Public Use
  Company Number: GB-JNJFOC-20061105552

PATIENT
  Sex: Male

DRUGS (9)
  1. PREDNISOLONE [Suspect]
     Indication: ILL-DEFINED DISORDER
  2. MERCAPTOPURINE [Suspect]
     Indication: CROHN'S DISEASE
  3. AZATHIOPRINE [Suspect]
     Indication: CROHN'S DISEASE
     Dosage: 2.5 MG/KG
     Route: 065
  4. AZATHIOPRINE [Suspect]
     Route: 065
     Dates: start: 20010601
  5. AZATHIOPRINE [Suspect]
     Route: 065
     Dates: start: 20020101, end: 20060901
  6. VIT B12 [Concomitant]
  7. REMICADE [Suspect]
     Dosage: STOPPED IN FEBRUARY - MARCH (3RD INFUSION)
     Route: 042
     Dates: end: 20060201
  8. METRONIDAZOLE [Concomitant]
  9. REMICADE [Suspect]
     Indication: CROHN'S DISEASE
     Route: 042
     Dates: end: 20050929

REACTIONS (16)
  - C-REACTIVE PROTEIN INCREASED [None]
  - SPLENOMEGALY [None]
  - HEPATOSPLENIC T-CELL LYMPHOMA [None]
  - ANAL FISTULA [None]
  - PELVIC PAIN [None]
  - DIABETIC KETOACIDOSIS [None]
  - LEUKOPENIA [None]
  - NEUTROPENIA [None]
  - INFLUENZA LIKE ILLNESS [None]
  - PLATELET COUNT DECREASED [None]
  - RECTAL DISCHARGE [None]
  - SEPSIS [None]
  - PYREXIA [None]
  - CROHN'S DISEASE [None]
  - LETHARGY [None]
  - RECTAL ABSCESS [None]
